FAERS Safety Report 23691608 (Version 1)
Quarter: 2024Q1

REPORT INFORMATION
  Report Type: Spontaneous
  Country: US (occurrence: None)
  Receive Date: 20240329
  Receipt Date: 20240329
  Transmission Date: 20240410
  Serious: No
  Sender: FDA-Public Use
  Company Number: None

PATIENT
  Age: 77 Year
  Sex: Male

DRUGS (9)
  1. ABIRATERONE [Suspect]
     Active Substance: ABIRATERONE
     Indication: Prostate cancer
     Dosage: 1000 MG DILY ORAL?
     Route: 048
     Dates: start: 20230817, end: 20240303
  2. PREDNISONE [Concomitant]
  3. GABAPENTIN [Concomitant]
  4. ATORVASTATIN [Concomitant]
     Active Substance: ATORVASTATIN
  5. FUROSEMIDE [Concomitant]
  6. METOPROLOL TARTRATE [Concomitant]
  7. POTASSIUM CHLORIDE [Concomitant]
  8. WARFARIN [Concomitant]
  9. ELIGARD [Concomitant]

REACTIONS (1)
  - Death [None]

NARRATIVE: CASE EVENT DATE: 20240303
